FAERS Safety Report 21180702 (Version 5)
Quarter: 2023Q2

REPORT INFORMATION
  Report Type: Spontaneous
  Country: US (occurrence: US)
  Receive Date: 20220806
  Receipt Date: 20230406
  Transmission Date: 20230722
  Serious: Yes (Hospitalization, Other)
  Sender: FDA-Public Use
  Company Number: US-SA-SAC20220729000761

PATIENT
  Age: 53 Year
  Sex: Female

DRUGS (1)
  1. AUBAGIO [Suspect]
     Active Substance: TERIFLUNOMIDE
     Indication: Multiple sclerosis
     Dosage: 14 MG, QD
     Route: 048
     Dates: start: 20201113

REACTIONS (6)
  - Multiple sclerosis relapse [Recovered/Resolved]
  - Fall [Unknown]
  - Abdominal discomfort [Unknown]
  - Headache [Unknown]
  - Paraesthesia [Unknown]
  - Product dose omission issue [Unknown]
